FAERS Safety Report 12976291 (Version 5)
Quarter: 2017Q3

REPORT INFORMATION
  Report Type: Spontaneous
  Country: FR (occurrence: FR)
  Receive Date: 20161126
  Receipt Date: 20170824
  Transmission Date: 20171127
  Serious: Yes (Death, Other)
  Sender: FDA-Public Use
  Company Number: FR-BAXTER-2016BAX059261

PATIENT
  Age: 65 Year
  Sex: Female

DRUGS (49)
  1. ARACYTINE [Suspect]
     Active Substance: CYTARABINE
     Indication: MANTLE CELL LYMPHOMA STAGE IV
     Dosage: 4 COURSES OF R-DHAC, HIGH DOSE
     Route: 065
  2. DEXAMETHASONE. [Suspect]
     Active Substance: DEXAMETHASONE
     Indication: MANTLE CELL LYMPHOMA STAGE IV
     Dosage: 4 COURSES OF R-DHAC
     Route: 065
  3. PREDNISOLONE. [Suspect]
     Active Substance: PREDNISOLONE
     Dosage: 1 COURSE OF R-CHOP PROTOCOL
     Route: 065
     Dates: start: 20160712
  4. ETOPOSIDE MYLAN [Suspect]
     Active Substance: ETOPOSIDE
     Indication: BONE MARROW CONDITIONING REGIMEN
     Dosage: PERFUSION, (EQUIVALENT TO 162 MG) TWICE DAILY FROM DAY-6 TO DAY-3 (1014 MG TOTAL DOSE)
     Route: 042
     Dates: start: 20161106, end: 20161109
  5. MABTHERA [Suspect]
     Active Substance: RITUXIMAB
     Indication: BONE MARROW CONDITIONING REGIMEN
     Dosage: IV PERFUSION, SINGLE DOSE
     Route: 042
     Dates: start: 20161105, end: 20161105
  6. SOLU-MEDROL [Suspect]
     Active Substance: METHYLPREDNISOLONE SODIUM SUCCINATE
     Indication: PRODUCT USED FOR UNKNOWN INDICATION
     Dosage: 1 MG/KG; DURING TREATMENT WITH CYTARABINE
     Route: 065
     Dates: start: 20161105, end: 20161109
  7. AMIKLIN [Suspect]
     Active Substance: AMIKACIN SULFATE
     Indication: PRODUCT USED FOR UNKNOWN INDICATION
     Route: 065
     Dates: start: 20161109, end: 20161109
  8. ENDOXAN 1000 MG, POUDRE POUR SOLUTION INJECTABLE [Suspect]
     Active Substance: CYCLOPHOSPHAMIDE
     Indication: BONE MARROW CONDITIONING REGIMEN
     Dosage: 1 COURSE OF REDUCED-DOSE R-CHOP PROTOCOL
     Route: 065
     Dates: start: 20161106
  9. CHLORURE DE SODIUM 0.9% VIAFLO, SOLUTION POUR PERFUSION [Suspect]
     Active Substance: SODIUM CHLORIDE
     Indication: PRODUCT USED FOR UNKNOWN INDICATION
     Route: 065
     Dates: start: 20161105, end: 20161106
  10. CHLORURE DE SODIUM 0.9% VIAFLO, SOLUTION POUR PERFUSION [Suspect]
     Active Substance: SODIUM CHLORIDE
     Route: 065
     Dates: start: 20161111, end: 20161111
  11. RITUXIMAB. [Suspect]
     Active Substance: RITUXIMAB
     Indication: MANTLE CELL LYMPHOMA STAGE IV
     Dosage: 1 COURSE OF REDUCED-DOSE R-CHOP PROTOCOL
     Route: 065
     Dates: start: 20160615
  12. DOXORUBICIN [Suspect]
     Active Substance: DOXORUBICIN
     Dosage: 1 COURSE OF R-CHOP PROTOCOL
     Route: 065
     Dates: start: 20160707
  13. PRIMPERAN [Suspect]
     Active Substance: METOCLOPRAMIDE HYDROCHLORIDE
     Indication: PRODUCT USED FOR UNKNOWN INDICATION
     Dosage: 1 VIAL
     Route: 065
     Dates: start: 20161108, end: 20161108
  14. ESIDREX [Concomitant]
     Active Substance: HYDROCHLOROTHIAZIDE
     Indication: PRODUCT USED FOR UNKNOWN INDICATION
     Route: 065
  15. VINCRISTINE [Suspect]
     Active Substance: VINCRISTINE
     Dosage: 1 COURSE OF R-CHOP PROTOCOL
     Route: 065
     Dates: start: 20160712
  16. ETOPOPHOS [Suspect]
     Active Substance: ETOPOSIDE PHOSPHATE
     Indication: BONE MARROW CONDITIONING REGIMEN
     Dosage: LYOPHILISATE FOR PARENTERAL USE
     Route: 042
     Dates: start: 20161106, end: 20161106
  17. EMEND [Suspect]
     Active Substance: APREPITANT
     Dosage: DAY3
     Route: 065
     Dates: start: 20161109, end: 20161109
  18. QUITAXON [Concomitant]
     Active Substance: DOXEPIN HYDROCHLORIDE
     Indication: PRODUCT USED FOR UNKNOWN INDICATION
     Dosage: IN THE EVENING
     Route: 065
  19. HYDROXYZINE [Concomitant]
     Active Substance: HYDROXYZINE HYDROCHLORIDE
     Indication: PRODUCT USED FOR UNKNOWN INDICATION
     Dosage: IN THE EVENING
     Route: 065
  20. ENDOXAN 1000 MG, POUDRE POUR SOLUTION INJECTABLE [Suspect]
     Active Substance: CYCLOPHOSPHAMIDE
     Indication: MANTLE CELL LYMPHOMA STAGE IV
     Dosage: 1 COURSE OF R-CHOP PROTOCOL
     Route: 065
     Dates: start: 20160712
  21. RITUXIMAB. [Suspect]
     Active Substance: RITUXIMAB
     Dosage: 1 COURSE OF R-CHOP PROTOCOL
     Route: 065
     Dates: start: 20160712
  22. VINCRISTINE [Suspect]
     Active Substance: VINCRISTINE
     Indication: MANTLE CELL LYMPHOMA STAGE IV
     Dosage: 1 COURSE OF REDUCED-DOSE R-CHOP PROTOCOL
     Route: 065
     Dates: start: 20160615
  23. PREDNISOLONE. [Suspect]
     Active Substance: PREDNISOLONE
     Indication: MANTLE CELL LYMPHOMA STAGE IV
     Dosage: 1 COURSE OF REDUCED-DOSE R-CHOP PROTOCOL
     Route: 065
     Dates: start: 20160615
  24. PERFALGAN [Suspect]
     Active Substance: ACETAMINOPHEN
     Indication: PRODUCT USED FOR UNKNOWN INDICATION
     Route: 065
     Dates: start: 20161105, end: 20161105
  25. LASILIX [Suspect]
     Active Substance: FUROSEMIDE
     Indication: PRODUCT USED FOR UNKNOWN INDICATION
     Route: 065
     Dates: start: 20161108, end: 20161108
  26. AXEPIM [Suspect]
     Active Substance: CEFEPIME HYDROCHLORIDE
     Indication: PRODUCT USED FOR UNKNOWN INDICATION
     Dosage: ANTIBIOTIC THERAPY
     Route: 065
     Dates: start: 20161109, end: 20161111
  27. BICNU [Suspect]
     Active Substance: CARMUSTINE
     Indication: BONE MARROW CONDITIONING REGIMEN
     Dosage: IV PERFUSION, ON DAY 1 OF PREPARATION,  (EQUIVALENT TO 507 MG IN TOTAL DOSE) ON DAY -7 (BEFORE AUTOG
     Route: 042
     Dates: start: 20161105, end: 20161105
  28. ARACYTINE [Suspect]
     Active Substance: CYTARABINE
     Indication: BONE MARROW CONDITIONING REGIMEN
     Dosage: IV PERFUSION, ON DAY 1 OF PREPARATION
     Route: 042
     Dates: start: 20161105
  29. RITUXIMAB. [Suspect]
     Active Substance: RITUXIMAB
     Dosage: 4 COURSES OF R-DHAC
     Route: 065
  30. HYDROXYDOXORUBICIN [Suspect]
     Active Substance: DOXORUBICIN HYDROCHLORIDE
     Indication: MANTLE CELL LYMPHOMA STAGE IV
     Dosage: R-MINI-CHOP, LOWER DOSAGES
     Route: 065
  31. EMEND [Suspect]
     Active Substance: APREPITANT
     Indication: PROPHYLAXIS OF NAUSEA AND VOMITING
     Dosage: ON DAY 1 OF ENDOXAN
     Route: 065
     Dates: start: 20161106, end: 20161106
  32. EMEND [Suspect]
     Active Substance: APREPITANT
     Route: 065
     Dates: start: 20161107, end: 20161107
  33. ESIDREX [Suspect]
     Active Substance: HYDROCHLOROTHIAZIDE
     Indication: PRODUCT USED FOR UNKNOWN INDICATION
     Route: 065
     Dates: start: 20161106, end: 20161106
  34. PRIMPERAN [Suspect]
     Active Substance: METOCLOPRAMIDE HYDROCHLORIDE
     Dosage: 1 VIAL
     Route: 065
     Dates: start: 20161109, end: 20161109
  35. ORACILLINE [Concomitant]
     Active Substance: PENICILLIN V
     Indication: PRODUCT USED FOR UNKNOWN INDICATION
     Dosage: 1 MIU, IN THE MORNING AND EVENING
     Route: 065
  36. MOVICOL [Concomitant]
     Active Substance: POLYETHYLENE GLYCOL 3350\POTASSIUM CHLORIDE\SODIUM BICARBONATE\SODIUM CHLORIDE
     Indication: PRODUCT USED FOR UNKNOWN INDICATION
     Dosage: 1 SACHET IN THE MORNING AND EVENING, IF NEEDED
     Route: 065
  37. CHIBRO-CADRON [Concomitant]
     Active Substance: DEXAMETHASONE\NEOMYCIN SULFATE
     Indication: PRODUCT USED FOR UNKNOWN INDICATION
     Dosage: EYE DROPS
     Route: 065
  38. ENDOXAN 1000 MG, POUDRE POUR SOLUTION INJECTABLE [Suspect]
     Active Substance: CYCLOPHOSPHAMIDE
     Dosage: IV PERFUSION, (EQUIVALENT TO 2535 MG) DAILY FROM DAY-6 TO DAY-3 (7605 MG TOTAL DOSE)
     Route: 042
     Dates: start: 20161105, end: 20161108
  39. CARBOPLATIN. [Suspect]
     Active Substance: CARBOPLATIN
     Indication: MANTLE CELL LYMPHOMA STAGE IV
     Dosage: 4 COURSES OF R-DHAC
     Route: 065
  40. DOXORUBICIN [Suspect]
     Active Substance: DOXORUBICIN
     Indication: MANTLE CELL LYMPHOMA STAGE IV
     Dosage: 1 COURSE OF REDUCED-DOSE R-CHOP PROTOCOL
     Route: 065
     Dates: start: 20160615
  41. ONCOVIN [Suspect]
     Active Substance: VINCRISTINE SULFATE
     Indication: MANTLE CELL LYMPHOMA STAGE IV
     Dosage: R-MINI-CHOP, LOWER DOSAGES
     Route: 065
  42. ZOPHREN [Suspect]
     Active Substance: ONDANSETRON
     Indication: PROPHYLAXIS OF NAUSEA AND VOMITING
     Route: 065
     Dates: start: 20161105, end: 20161105
  43. MESNA EG [Suspect]
     Active Substance: MESNA
     Indication: PRODUCT USED FOR UNKNOWN INDICATION
     Route: 042
     Dates: start: 20161106, end: 20161108
  44. CYTARABINE KABI [Suspect]
     Active Substance: CYTARABINE
     Indication: BONE MARROW CONDITIONING REGIMEN
     Dosage: (EQUIVALENT TO 338 MG) TWICE DAILY FROM DAY-6 TO DAY-3 (2707 MG TOTAL DOSE)
     Route: 042
     Dates: start: 20161106, end: 20161109
  45. ACUPAN [Suspect]
     Active Substance: NEFOPAM HYDROCHLORIDE
     Indication: PRODUCT USED FOR UNKNOWN INDICATION
     Dosage: 1 VIAL
     Route: 065
     Dates: start: 20161109, end: 20161109
  46. EPOETIN ALFA [Concomitant]
     Active Substance: ERYTHROPOIETIN
     Indication: PRODUCT USED FOR UNKNOWN INDICATION
     Route: 065
  47. ENDOXAN 1000 MG, POUDRE POUR SOLUTION INJECTABLE [Suspect]
     Active Substance: CYCLOPHOSPHAMIDE
     Dosage: R-MINI-CHOP, LOWER DOSAGES
     Route: 065
  48. POLARAMINE [Suspect]
     Active Substance: DEXCHLORPHENIRAMINE MALEATE
     Indication: PRODUCT USED FOR UNKNOWN INDICATION
     Dosage: 1 VIAL
     Route: 065
     Dates: start: 20161105, end: 20161105
  49. EMEND [Suspect]
     Active Substance: APREPITANT
     Dosage: DAY2
     Route: 065
     Dates: start: 20161108, end: 20161108

REACTIONS (9)
  - Leukopenia [Unknown]
  - Cardiotoxicity [Fatal]
  - Pulmonary toxicity [Fatal]
  - Hypokalaemia [Unknown]
  - Cardiomegaly [Unknown]
  - Diarrhoea [Unknown]
  - Interstitial lung disease [Unknown]
  - Neutropenia [Unknown]
  - Dysuria [Unknown]

NARRATIVE: CASE EVENT DATE: 201611
